FAERS Safety Report 5648172-5 (Version None)
Quarter: 2008Q1

REPORT INFORMATION
  Report Type: 
  Country: None (occurrence: None)
  Receive Date: 20080229
  Receipt Date: 20080222
  Transmission Date: 20080703
  Serious: Yes (Death, Hospitalization)
  Sender: FDA-Public Use
  Company Number: FABR-1000105

PATIENT
  Age: 78 Year
  Sex: Female

DRUGS (1)
  1. FABRAZYME (AGALSIDASE BETA) PWDER FOR SOLUTION FOR INFUSION [Suspect]
     Indication: FABRY'S DISEASE
     Dosage: INTRAVENOUS
     Route: 042
     Dates: start: 20040628

REACTIONS (4)
  - CEREBRAL HAEMORRHAGE [None]
  - CLOSTRIDIAL INFECTION [None]
  - FALL [None]
  - HEAD INJURY [None]
